FAERS Safety Report 10028353 (Version 3)
Quarter: 2014Q2

REPORT INFORMATION
  Report Type: Report from Study
  Country: US (occurrence: US)
  Receive Date: 20140321
  Receipt Date: 20140423
  Transmission Date: 20141212
  Serious: Yes (Death, Hospitalization)
  Sender: FDA-Public Use
  Company Number: US-ALEXION PHARMACEUTICALS INC.-A201400850

PATIENT
  Sex: 0

DRUGS (22)
  1. SOLIRIS [Suspect]
     Indication: HAEMOLYTIC URAEMIC SYNDROME
     Dosage: 1200 MG, Q2W
     Route: 042
     Dates: start: 20140224
  2. KEPPRA [Concomitant]
     Indication: PRODUCT USED FOR UNKNOWN INDICATION
     Dosage: UNK
     Route: 065
     Dates: start: 20140101
  3. KEPPRA [Concomitant]
     Dosage: 500 MG, TIW
     Route: 048
     Dates: start: 20140328
  4. KEPPRA [Concomitant]
     Dosage: 750 MG, BID
     Route: 048
     Dates: start: 20140328
  5. STEROID [Concomitant]
     Indication: STEROID THERAPY
     Dosage: 1 G, QD
     Route: 065
     Dates: start: 20140313, end: 20140327
  6. IMMUNOSUPPRESSANTS [Concomitant]
     Indication: IMMUNOSUPPRESSANT DRUG THERAPY
     Dosage: UNK
     Route: 065
     Dates: start: 20140313
  7. CHLORHEXIDINE GLUCONATE [Concomitant]
     Indication: PRODUCT USED FOR UNKNOWN INDICATION
     Dosage: 15 ML, BID
     Route: 048
     Dates: start: 20140324
  8. ACYCLOVIR                          /00587301/ [Concomitant]
     Indication: PRODUCT USED FOR UNKNOWN INDICATION
     Dosage: 400 MG, BID
     Route: 065
     Dates: start: 20140325
  9. ALBUTEROL                          /00139501/ [Concomitant]
     Indication: PRODUCT USED FOR UNKNOWN INDICATION
     Dosage: 2.8 MG, Q4 HOURS PRN
     Route: 065
     Dates: start: 20140325
  10. BISACODYL [Concomitant]
     Indication: CONSTIPATION
     Dosage: 10 MG, PRN
     Route: 065
     Dates: start: 20140325
  11. LOPRESSOR [Concomitant]
     Indication: HYPERTENSION
     Dosage: 100 MG, BID
     Route: 065
     Dates: start: 20140325
  12. PEPCID                             /00706001/ [Concomitant]
     Indication: PRODUCT USED FOR UNKNOWN INDICATION
     Dosage: 20 MG, QD
     Route: 065
     Dates: start: 20140325
  13. ROBITUSSIN                         /00048001/ [Concomitant]
     Indication: PRODUCT USED FOR UNKNOWN INDICATION
     Dosage: 200 MG, Q8 HOURS PRN
     Route: 065
     Dates: start: 20140325
  14. BACTRIM [Concomitant]
     Indication: PRODUCT USED FOR UNKNOWN INDICATION
     Dosage: 800 MG/160 MG, M/W
     Route: 065
     Dates: start: 20140326
  15. PREDNISONE [Concomitant]
     Indication: STEROID THERAPY
     Dosage: 45 MG, QD
     Route: 065
     Dates: start: 20140327
  16. COZAAR [Concomitant]
     Indication: HYPERTENSION
     Dosage: 100 MG, QD
     Route: 065
     Dates: start: 20140328
  17. CIPROFLOXACIN [Concomitant]
     Indication: PRODUCT USED FOR UNKNOWN INDICATION
     Dosage: 500 MG, QD
     Route: 048
     Dates: start: 20140330
  18. NORVASC [Concomitant]
     Indication: HYPERTENSION
     Dosage: 10 MG, QD
     Route: 048
     Dates: start: 20140330
  19. DARBEPOETIN ALFA [Concomitant]
     Indication: PRODUCT USED FOR UNKNOWN INDICATION
     Dosage: 100 ?G, QW
     Route: 042
     Dates: start: 20140331
  20. MYCOPHENOLATE [Concomitant]
     Indication: IMMUNOSUPPRESSANT DRUG THERAPY
     Dosage: 1080 MG, BID
     Route: 048
     Dates: start: 20140331
  21. HEPARIN [Concomitant]
     Indication: ANTICOAGULANT THERAPY
     Dosage: 1000 UNITS POST-DIALYSIS
     Route: 065
     Dates: start: 20140402
  22. VANCOMYCIN [Concomitant]
     Indication: PRODUCT USED FOR UNKNOWN INDICATION
     Dosage: 125 MG, UNK
     Route: 065
     Dates: start: 20140403, end: 20140412

REACTIONS (3)
  - Pneumonia viral [Unknown]
  - Convulsion [Recovered/Resolved]
  - Death [Fatal]
